FAERS Safety Report 5363065-9 (Version None)
Quarter: 2007Q2

REPORT INFORMATION
  Report Type: 
  Country: None (occurrence: None)
  Receive Date: 20070615
  Receipt Date: 20070612
  Transmission Date: 20071010
  Serious: Yes (Other)
  Sender: FDA-Public Use
  Company Number: 2006S1000202

PATIENT
  Age: 62 Year
  Sex: Female
  Weight: 64 kg

DRUGS (18)
  1. NITRIC OXIDE [Suspect]
     Indication: VENTRICULAR ASSIST DEVICE INSERTION
     Dosage: 40 PPM;CONT;INH
     Route: 055
     Dates: start: 20060929, end: 20061001
  2. FUROSEMIDE [Concomitant]
  3. TAZOBACTAM [Concomitant]
  4. HEPARIN SODIUM [Concomitant]
  5. DOPAMINE HCL [Concomitant]
  6. DOBUTAMINE HCL [Concomitant]
  7. ADRENALINE [Concomitant]
  8. NITROGLYCERIN [Concomitant]
  9. CALCIUM CHLORIDE ^BIOTIKA^ [Concomitant]
  10. PROPOFOL [Concomitant]
  11. SUFENTANIL CITRATE [Concomitant]
  12. PANCURONIUM [Concomitant]
  13. FENISTIL [Concomitant]
  14. MANNITOL [Concomitant]
  15. HEPARIN [Concomitant]
  16. PERFAN [Concomitant]
  17. PROTAMINE SULFATE [Concomitant]
  18. TRANXENE [Concomitant]

REACTIONS (1)
  - POST PROCEDURAL HAEMORRHAGE [None]
